FAERS Safety Report 9286892 (Version 1)
Quarter: 2013Q2

REPORT INFORMATION
  Report Type: Spontaneous
  Country: US (occurrence: US)
  Receive Date: 20130513
  Receipt Date: 20130513
  Transmission Date: 20140414
  Serious: Yes (Hospitalization)
  Sender: FDA-Public Use
  Company Number: CHPA2013US008067

PATIENT
  Sex: Female

DRUGS (1)
  1. VOLTAREN GEL [Suspect]
     Indication: PLANTAR FASCIITIS
     Dosage: 1 OUNCE 1-2 TIMES DAILY
     Route: 061

REACTIONS (2)
  - Renal failure [Recovering/Resolving]
  - Off label use [Unknown]
